FAERS Safety Report 9045239 (Version 2)
Quarter: 2013Q1

REPORT INFORMATION
  Report Type: Spontaneous
  Country: US (occurrence: US)
  Receive Date: 20130131
  Receipt Date: 20130219
  Transmission Date: 20140127
  Serious: Yes (Death, Life-Threatening, Other)
  Sender: FDA-Public Use
  Company Number: US-009507513-1301USA013174

PATIENT
  Sex: Female
  Weight: 67.12 kg

DRUGS (2)
  1. IMPLANON [Suspect]
     Indication: CONTRACEPTION
     Dosage: 68 MG, UNK
     Route: 059
     Dates: start: 20111207
  2. VALIUM [Concomitant]

REACTIONS (2)
  - Pulmonary embolism [Fatal]
  - Cough [Unknown]
